FAERS Safety Report 12382829 (Version 3)
Quarter: 2016Q2

REPORT INFORMATION
  Report Type: Spontaneous
  Country: CA (occurrence: CA)
  Receive Date: 20160518
  Receipt Date: 20160613
  Transmission Date: 20160815
  Serious: Yes (Other)
  Sender: FDA-Public Use
  Company Number: CA-GE HEALTHCARE MEDICAL DIAGNOSTICS-VISP-PR-1605S-0248

PATIENT
  Age: 42 Year
  Sex: Female
  Weight: 69.9 kg

DRUGS (2)
  1. VISIPAQUE [Suspect]
     Active Substance: IODIXANOL
     Indication: DIAGNOSTIC PROCEDURE
  2. VISIPAQUE [Suspect]
     Active Substance: IODIXANOL
     Indication: UTERINE CANCER
     Route: 042
     Dates: start: 20160425, end: 20160425

REACTIONS (1)
  - Anaphylactic reaction [Unknown]

NARRATIVE: CASE EVENT DATE: 20160425
